FAERS Safety Report 6991731-8 (Version None)
Quarter: 2010Q3

REPORT INFORMATION
  Report Type: 
  Country: None (occurrence: None)
  Receive Date: 20100917
  Receipt Date: 20100818
  Transmission Date: 20110219
  Serious: No
  Sender: FDA-Public Use
  Company Number: US-PFIZER INC-2010104882

PATIENT
  Sex: Female

DRUGS (6)
  1. LYRICA [Suspect]
     Indication: FIBROMYALGIA
     Dosage: 50 MG, 2X/DAY
     Route: 048
     Dates: start: 20070101
  2. LYRICA [Suspect]
     Dosage: 75 MG, 2X/DAY
     Route: 048
  3. LYRICA [Suspect]
     Dosage: 25 MG, 3X/DAY
     Dates: start: 20100501
  4. PERCOCET [Concomitant]
     Dosage: 7.5/325 MG UNK
  5. BENICAR [Concomitant]
     Dosage: 20 MG, UNK
  6. CLARINEX [Concomitant]
     Dosage: 5 MG, UNK

REACTIONS (4)
  - DRUG INEFFECTIVE [None]
  - PAIN [None]
  - SWELLING [None]
  - WEIGHT INCREASED [None]
